FAERS Safety Report 6408857-X (Version None)
Quarter: 2009Q4

REPORT INFORMATION
  Report Type: 
  Country: None (occurrence: None)
  Receive Date: 20091021
  Receipt Date: 20091012
  Transmission Date: 20100525
  Serious: Yes (Hospitalization)
  Sender: FDA-Public Use
  Company Number: US-BAYER-200936083NA

PATIENT
  Age: 30 Year
  Sex: Male

DRUGS (5)
  1. BETASERON [Suspect]
     Indication: MULTIPLE SCLEROSIS
     Dosage: TOTAL DAILY DOSE: 2 MIU
     Route: 058
     Dates: start: 20091006, end: 20091007
  2. ACETAMINOPHEN [Concomitant]
     Indication: PREMEDICATION
  3. VITAMINS [Concomitant]
  4. MINERAL TAB [Concomitant]
  5. SUPPLEMENTS NOS [Concomitant]

REACTIONS (4)
  - CHILLS [None]
  - MOTOR DYSFUNCTION [None]
  - TREMOR [None]
  - URINARY RETENTION [None]
